FAERS Safety Report 24791791 (Version 1)
Quarter: 2024Q4

REPORT INFORMATION
  Report Type: Spontaneous
  Country: IT (occurrence: IT)
  Receive Date: 20241231
  Receipt Date: 20241231
  Transmission Date: 20250115
  Serious: Yes (Other)
  Sender: KVK-TECH
  Company Number: IT-KVK-TECH, INC-20241200185

PATIENT

DRUGS (2)
  1. ARSENIC TRIOXIDE [Suspect]
     Active Substance: ARSENIC TRIOXIDE
     Indication: Acute promyelocytic leukaemia
     Dosage: 0.15 MILLIGRAM/KILOGRAM, QD (0.15 MG/KG/DAY EQUIVALENT TO 11.25 MG/DAY)
     Route: 065
  2. ARSENIC TRIOXIDE [Suspect]
     Active Substance: ARSENIC TRIOXIDE
     Dosage: 0.11 MILLIGRAM/KILOGRAM, QD (0.11MG/KG/DAY)
     Route: 065

REACTIONS (2)
  - Neuropathy peripheral [Recovering/Resolving]
  - Hypertransaminasaemia [Recovering/Resolving]
